FAERS Safety Report 10956526 (Version 1)
Quarter: 2015Q1

REPORT INFORMATION
  Report Type: Spontaneous
  Country: US (occurrence: None)
  Receive Date: 20150226
  Receipt Date: 20150226
  Transmission Date: 20150721
  Serious: Yes (Hospitalization)
  Sender: FDA-Public Use
  Company Number: TPA2011A06266

PATIENT
  Age: 40 Year
  Sex: Female
  Weight: 107.96 kg

DRUGS (3)
  1. LANTUS [Concomitant]
     Active Substance: INSULIN GLARGINE
  2. METFORMIN [Concomitant]
     Active Substance: METFORMIN HYDROCHLORIDE
  3. ACTOS [Suspect]
     Active Substance: PIOGLITAZONE HYDROCHLORIDE
     Indication: TYPE 2 DIABETES MELLITUS
     Dosage: 1 IN 1 D
     Route: 048
     Dates: start: 20110728, end: 20110825

REACTIONS (2)
  - Weight increased [None]
  - Oedema [None]

NARRATIVE: CASE EVENT DATE: 20110826
